FAERS Safety Report 4286734-0 (Version None)
Quarter: 2004Q1

REPORT INFORMATION
  Report Type: 
  Country: None (occurrence: None)
  Receive Date: 20040206
  Receipt Date: 20040205
  Transmission Date: 20041129
  Serious: Yes (Death, Hospitalization)
  Sender: FDA-Public Use
  Company Number: GB-GLAXOSMITHKLINE-A0496919A

PATIENT
  Age: 70 Year
  Sex: Male

DRUGS (2)
  1. NAVELBINE [Suspect]
     Dosage: 50MG SINGLE DOSE
     Route: 042
     Dates: start: 20040121, end: 20040121
  2. DOMPERIDONE [Concomitant]
     Dates: start: 20040121, end: 20040121

REACTIONS (2)
  - BRONCHOSPASM [None]
  - DEATH [None]
